FAERS Safety Report 10211847 (Version 2)
Quarter: 2014Q2

REPORT INFORMATION
  Report Type: Spontaneous
  Country: US (occurrence: US)
  Receive Date: 20140602
  Receipt Date: 20140602
  Transmission Date: 20141212
  Serious: No
  Sender: FDA-Public Use
  Company Number: US-AMGEN-USASP2014028984

PATIENT
  Age: 39 Year
  Sex: Female
  Weight: 39.46 kg

DRUGS (1)
  1. ENBREL [Suspect]
     Indication: RHEUMATOID ARTHRITIS
     Dosage: 25 MG, 2 TIMES/WK
     Route: 058
     Dates: start: 20130617

REACTIONS (3)
  - Dental caries [Unknown]
  - Tooth fracture [Recovered/Resolved]
  - Tooth infection [Recovered/Resolved]
